FAERS Safety Report 16149240 (Version 1)
Quarter: 2019Q2

REPORT INFORMATION
  Report Type: Spontaneous
  Country: US (occurrence: US)
  Receive Date: 20190402
  Receipt Date: 20190402
  Transmission Date: 20190711
  Serious: Yes (Other)
  Sender: FDA-Public Use
  Company Number: US-PFIZER INC-2019134389

PATIENT
  Age: 15 Year
  Sex: Male

DRUGS (1)
  1. GENOTROPIN [Suspect]
     Active Substance: SOMATROPIN
     Dosage: 3 MG, DAILY
     Dates: start: 20130613

REACTIONS (5)
  - Back pain [Unknown]
  - Headache [Unknown]
  - Therapeutic product effect incomplete [Unknown]
  - Scoliosis [Unknown]
  - Septo-optic dysplasia [Unknown]
